FAERS Safety Report 9298460 (Version 1)
Quarter: 2013Q2

REPORT INFORMATION
  Report Type: Spontaneous
  Country: JP (occurrence: JP)
  Receive Date: 20130520
  Receipt Date: 20130520
  Transmission Date: 20140414
  Serious: Yes (Death, Other)
  Sender: FDA-Public Use
  Company Number: JP-PFIZER INC-2013149797

PATIENT
  Age: 89 Year
  Sex: Male

DRUGS (4)
  1. METHYLPREDNISOLONE [Suspect]
     Indication: PEMPHIGUS
     Dosage: 1 G/DAY FOR 3 DAYS
  2. PREDNISOLONE [Suspect]
     Indication: PEMPHIGUS
     Dosage: 60 MG/DAY (1 MG/KG)
     Route: 048
  3. IMMUNOGLOBULINS [Concomitant]
     Indication: INFECTION
     Dosage: 5 G/DAY FOR 5 DAYS
     Route: 042
  4. IMMUNOGLOBULINS [Concomitant]
     Route: 042

REACTIONS (4)
  - General physical health deterioration [Fatal]
  - Infection [Fatal]
  - Gastrointestinal haemorrhage [Unknown]
  - Disseminated intravascular coagulation [Unknown]
